FAERS Safety Report 6346725-2 (Version None)
Quarter: 2009Q3

REPORT INFORMATION
  Report Type: 
  Country: None (occurrence: None)
  Receive Date: 20090904
  Receipt Date: 20090831
  Transmission Date: 20100115
  Serious: Yes (Hospitalization)
  Sender: FDA-Public Use
  Company Number: GRT 2009-12857

PATIENT
  Sex: Male

DRUGS (20)
  1. LIDOCAINE [Suspect]
     Indication: PAIN
     Dosage: 1 PATCH A DAY, TOPICAL
     Route: 061
     Dates: start: 20081201, end: 20090701
  2. MYCOPHENOLATE MOFETIL [Concomitant]
  3. PREDNISONE TAB [Concomitant]
  4. POTASSIUM CHLORIDE [Concomitant]
  5. CALCIUM CARBONATE [Concomitant]
  6. ESOMEPRAZOLE MAGNESIUM [Concomitant]
  7. ATORVASTATIN CALCIUM [Concomitant]
  8. ALDACTONE [Concomitant]
  9. IRBESARTAN [Concomitant]
  10. LOVENOX [Concomitant]
  11. NOVORAPID [Concomitant]
  12. LANTUS [Concomitant]
  13. SERETIDE [Concomitant]
  14. NASONEX [Concomitant]
  15. IPRATROPIUM [Concomitant]
  16. ZITHROMAX [Concomitant]
  17. NEURONTIN [Concomitant]
  18. SKENAN [Concomitant]
  19. ACTISKENAN [Concomitant]
  20. OXYCODONE HCL [Suspect]
     Indication: PAIN
     Dosage: 100 NG, BID, ORAL
     Route: 048
     Dates: start: 20081201

REACTIONS (3)
  - DYSKINESIA [None]
  - MYOCLONUS [None]
  - NEURALGIA [None]
